FAERS Safety Report 7441803-9 (Version None)
Quarter: 2011Q2

REPORT INFORMATION
  Report Type: 
  Country: None (occurrence: None)
  Receive Date: 20110420
  Receipt Date: 20110408
  Transmission Date: 20111010
  Serious: Yes (Hospitalization)
  Sender: FDA-Public Use
  Company Number: JP-2011-10615

PATIENT
  Age: 57 Year
  Sex: Male

DRUGS (3)
  1. ASPIRIN [Suspect]
     Dosage: 100 MG MILLIGRAM(S), QD, ORAL
     Route: 048
  2. PLETAL [Suspect]
     Dosage: 100 MG MILLIGRAM(S), BID, ORAL
     Route: 048
  3. PLAVIX [Suspect]
     Dosage: 75 M MILLIGRAM(S), QD,ORAL
     Route: 048

REACTIONS (5)
  - GASTROINTESTINAL HAEMORRHAGE [None]
  - GASTRIC ULCER [None]
  - OESOPHAGEAL ULCER [None]
  - SCAR [None]
  - HAEMATEMESIS [None]
